FAERS Safety Report 24700410 (Version 1)
Quarter: 2024Q4

REPORT INFORMATION
  Report Type: Spontaneous
  Country: IT (occurrence: IT)
  Receive Date: 20241205
  Receipt Date: 20241205
  Transmission Date: 20250114
  Serious: Yes (Other)
  Sender: TEVA
  Company Number: IT-TEVA-VS-3271463

PATIENT
  Age: 59 Year
  Sex: Female

DRUGS (2)
  1. ARSENIC TRIOXIDE [Suspect]
     Active Substance: ARSENIC TRIOXIDE
     Indication: Acute promyelocytic leukaemia
     Dosage: EQUIVALENT TO 6.6MG/DAY, CUMULATIVE ATO DOSE AT SYMPTOMS ONSET WAS 131 MG
     Route: 065
  2. TRETINOIN [Concomitant]
     Active Substance: TRETINOIN
     Indication: Acute promyelocytic leukaemia
     Route: 065

REACTIONS (1)
  - Neurotoxicity [Recovered/Resolved]
